FAERS Safety Report 5509532-6 (Version None)
Quarter: 2007Q4

REPORT INFORMATION
  Report Type: 
  Country: None (occurrence: None)
  Receive Date: 20071107
  Receipt Date: 20071003
  Transmission Date: 20080405
  Serious: Yes (Other)
  Sender: FDA-Public Use
  Company Number: DK-PFIZER INC-2007091850

PATIENT
  Sex: Female

DRUGS (1)
  1. LYRICA [Suspect]
     Indication: FIBROMYALGIA
     Route: 048

REACTIONS (16)
  - ANXIETY [None]
  - BALANCE DISORDER [None]
  - CONFUSIONAL STATE [None]
  - COUGH [None]
  - DEREALISATION [None]
  - DIPLOPIA [None]
  - DISTURBANCE IN ATTENTION [None]
  - DYSPHONIA [None]
  - FALL [None]
  - FATIGUE [None]
  - HEADACHE [None]
  - INCOHERENT [None]
  - JAUNDICE [None]
  - MANIA [None]
  - PULMONARY FUNCTION TEST DECREASED [None]
  - TEARFULNESS [None]
